FAERS Safety Report 14926692 (Version 2)
Quarter: 2018Q3

REPORT INFORMATION
  Report Type: Report from Study
  Country: FR (occurrence: FR)
  Receive Date: 20180523
  Receipt Date: 20180823
  Transmission Date: 20181010
  Serious: Yes (Hospitalization)
  Sender: FDA-Public Use
  Company Number: FR-ROCHE-2124261

PATIENT
  Age: 59 Year
  Sex: Male

DRUGS (2)
  1. LENALIDOMIDE [Suspect]
     Active Substance: LENALIDOMIDE
     Indication: DIFFUSE LARGE B-CELL LYMPHOMA
     Dosage: AT 10/15/20/25MG?LAST ADMINISTRATION OF LENALIDOMIDE 10 MG DAILY BEFORE SAE ON: 03/JUL/2017
     Route: 065
     Dates: start: 20160222
  2. OBINUTUZUMAB. [Suspect]
     Active Substance: OBINUTUZUMAB
     Indication: DIFFUSE LARGE B-CELL LYMPHOMA
     Dosage: ON D8, D15 AND D22OF CYCLE 1 AND ON D1 OF CYCLES 2 TO 6?LAST ADMINISTRATION OF OBINUTUZUMAB 1000 MG
     Route: 065
     Dates: start: 20160229

REACTIONS (1)
  - Lung disorder [Not Recovered/Not Resolved]

NARRATIVE: CASE EVENT DATE: 20180511
